FAERS Safety Report 7899586-4 (Version None)
Quarter: 2011Q4

REPORT INFORMATION
  Report Type: 
  Country: None (occurrence: None)
  Receive Date: 20111107
  Receipt Date: 20110915
  Transmission Date: 20120403
  Serious: No
  Sender: FDA-Public Use
  Company Number: US-AMGEN-USASP2011047824

PATIENT
  Age: 52 Year
  Sex: Female

DRUGS (1)
  1. ENBREL [Suspect]
     Indication: RHEUMATOID ARTHRITIS
     Dosage: 50 MG, QWK
     Dates: start: 20110216, end: 20110615

REACTIONS (10)
  - MUSCULAR WEAKNESS [None]
  - FATIGUE [None]
  - FEELING HOT [None]
  - ERYTHEMA [None]
  - MYALGIA [None]
  - RHEUMATOID ARTHRITIS [None]
  - CARDIAC DISORDER [None]
  - PRURITUS [None]
  - HYPERSENSITIVITY [None]
  - MALAISE [None]
